FAERS Safety Report 16507820 (Version 1)
Quarter: 2019Q3

REPORT INFORMATION
  Report Type: Spontaneous
  Country: TW (occurrence: TW)
  Receive Date: 20190701
  Receipt Date: 20190701
  Transmission Date: 20191004
  Serious: Yes (Other)
  Sender: FDA-Public Use
  Company Number: TW-GLAXOSMITHKLINE-TW2019APC113519

PATIENT

DRUGS (1)
  1. NUCALA [Suspect]
     Active Substance: MEPOLIZUMAB
     Indication: PRODUCT USED FOR UNKNOWN INDICATION
     Dosage: 100 MG, UNK, 2 VIAL SC ST
     Route: 042

REACTIONS (6)
  - Polyneuropathy [Unknown]
  - Hypersensitivity vasculitis [Unknown]
  - Rhinitis allergic [Unknown]
  - Tinea pedis [Unknown]
  - Product use issue [Unknown]
  - Asthma [Unknown]
